FAERS Safety Report 12519783 (Version 1)
Quarter: 2016Q2

REPORT INFORMATION
  Report Type: Report from Study
  Country: US (occurrence: US)
  Receive Date: 20160630
  Receipt Date: 20160630
  Transmission Date: 20160815
  Serious: Yes (Hospitalization)
  Sender: FDA-Public Use
  Company Number: US-EXELIXIS-CABO-16006446

PATIENT
  Age: 52 Year
  Sex: Male

DRUGS (9)
  1. COMETRIQ [Suspect]
     Active Substance: CABOZANTINIB S-MALATE
     Indication: RENAL CANCER
     Dosage: 60 MG, QD
     Route: 048
     Dates: start: 20160422, end: 20160517
  2. MORPHINE [Concomitant]
     Active Substance: MORPHINE
  3. LORAZEPAM. [Concomitant]
     Active Substance: LORAZEPAM
  4. DEXAMETHASONE. [Concomitant]
     Active Substance: DEXAMETHASONE
  5. ZOFRAN [Concomitant]
     Active Substance: ONDANSETRON HYDROCHLORIDE
  6. METOCLOPRAMIDE. [Concomitant]
     Active Substance: METOCLOPRAMIDE
  7. REMERON [Concomitant]
     Active Substance: MIRTAZAPINE
  8. METOPROLOL. [Concomitant]
     Active Substance: METOPROLOL
  9. BISACODYL. [Concomitant]
     Active Substance: BISACODYL

REACTIONS (20)
  - Fall [Recovered/Resolved]
  - Constipation [Unknown]
  - Cough [Unknown]
  - Nausea [Unknown]
  - Vomiting [Unknown]
  - Decreased appetite [Unknown]
  - Anxiety [Unknown]
  - Thyroiditis [Unknown]
  - Asthenia [Unknown]
  - Off label use [Unknown]
  - Depression [Unknown]
  - Dyspnoea [Unknown]
  - Metastatic neoplasm [Unknown]
  - Failure to thrive [Unknown]
  - Fatigue [Unknown]
  - Dizziness [Unknown]
  - Dehydration [Unknown]
  - Dysphagia [Recovered/Resolved]
  - Tachycardia [Recovering/Resolving]
  - Chest pain [Unknown]

NARRATIVE: CASE EVENT DATE: 201604
